FAERS Safety Report 17063256 (Version 2)
Quarter: 2019Q4

REPORT INFORMATION
  Report Type: Report from Study
  Country: ES (occurrence: ES)
  Receive Date: 20191122
  Receipt Date: 20191129
  Transmission Date: 20200122
  Serious: No
  Sender: FDA-Public Use
  Company Number: ES-ROCHE-2475308

PATIENT
  Age: 52 Year
  Sex: Female

DRUGS (10)
  1. COBIMETINIB. [Suspect]
     Active Substance: COBIMETINIB
     Indication: MALIGNANT MELANOMA
  2. VEMURAFENIB. [Suspect]
     Active Substance: VEMURAFENIB
     Indication: MALIGNANT MELANOMA
  3. FLUTICASONA [FLUTICASONE] [Concomitant]
     Route: 061
     Dates: start: 20190909, end: 20191022
  4. COBIMETINIB. [Suspect]
     Active Substance: COBIMETINIB
     Indication: METASTASES TO CENTRAL NERVOUS SYSTEM
     Dosage: ONCE A DAY ON DAY 1-21 OF EACH 28 DAY CYCLE?DATE OF LAST DOSE OF COBIMETINIB(40 MG) PRIOR  TO AE/SAE
     Route: 048
     Dates: start: 20190807
  5. ATEZOLIZUMAB. [Suspect]
     Active Substance: ATEZOLIZUMAB
     Indication: METASTASES TO CENTRAL NERVOUS SYSTEM
     Dosage: ON DAYS 1 AND 15 OF EACH 28-DAY CYCLE?DOSE OF LAST ATEZOLIZUMAB ADMINISTERED PRIOR TO AE/SAE ONSET:
     Route: 042
     Dates: start: 20190912
  6. OMEPRAZOL [OMEPRAZOLE] [Concomitant]
     Active Substance: OMEPRAZOLE
     Route: 048
  7. KEPPRA [Concomitant]
     Active Substance: LEVETIRACETAM
     Route: 048
     Dates: start: 20190628, end: 20190910
  8. ATEZOLIZUMAB. [Suspect]
     Active Substance: ATEZOLIZUMAB
     Indication: MALIGNANT MELANOMA
  9. VEMURAFENIB. [Suspect]
     Active Substance: VEMURAFENIB
     Indication: METASTASES TO CENTRAL NERVOUS SYSTEM
     Dosage: 960 MG (FOUR 240 MG TABLETS) ON DAY 1-21 OF THE RUN-IN PERIOD (CYCLE 1); THEREAFTER, 720 MG DOSE (TH
     Route: 048
     Dates: start: 20190807
  10. SIMVASTATINA [Concomitant]
     Active Substance: SIMVASTATIN
     Indication: DYSLIPIDAEMIA
     Route: 048
     Dates: start: 2009

REACTIONS (1)
  - Lipase increased [Recovering/Resolving]

NARRATIVE: CASE EVENT DATE: 20191105
